FAERS Safety Report 4780960-X (Version None)
Quarter: 2005Q3

REPORT INFORMATION
  Report Type: 
  Country: None (occurrence: None)
  Receive Date: 20050926
  Receipt Date: 20050926
  Transmission Date: 20060218
  Serious: Yes (Other)
  Sender: FDA-Public Use
  Company Number: None

PATIENT
  Age: 20 Year
  Sex: Female

DRUGS (1)
  1. TERBUTALINE [Suspect]
     Indication: PREMATURE LABOUR

REACTIONS (5)
  - DRUG EXPOSURE DURING PREGNANCY [None]
  - LABORATORY TEST INTERFERENCE [None]
  - LEGAL PROBLEM [None]
  - OFF LABEL USE [None]
  - PREMATURE LABOUR [None]
